FAERS Safety Report 16758612 (Version 2)
Quarter: 2019Q3

REPORT INFORMATION
  Report Type: Spontaneous
  Country: JP (occurrence: JP)
  Receive Date: 20190830
  Receipt Date: 20190924
  Transmission Date: 20191005
  Serious: Yes (Hospitalization, Disabling)
  Sender: FDA-Public Use
  Company Number: JP-ROCHE-2393162

PATIENT
  Age: 60 Year
  Sex: Male
  Weight: 69 kg

DRUGS (11)
  1. BAYASPIRIN [Concomitant]
     Active Substance: ASPIRIN
     Dosage: DOSAGE IS UNCERTAIN.
     Route: 048
     Dates: start: 20170119
  2. BENDAMUSTINE HYDROCHLORIDE. [Concomitant]
     Active Substance: BENDAMUSTINE HYDROCHLORIDE
     Indication: B-CELL LYMPHOMA
     Dosage: DOSAGE IS UNCERTAIN.
     Route: 041
     Dates: start: 20190624, end: 2019
  3. ESOMEPRAZOLE. [Concomitant]
     Active Substance: ESOMEPRAZOLE MAGNESIUM
     Dosage: DOSAGE IS UNCERTAIN.
     Route: 048
     Dates: start: 20170113
  4. ACICLOVIR [Concomitant]
     Active Substance: ACYCLOVIR
     Dosage: DOSAGE IS UNCERTAIN.
     Route: 048
     Dates: start: 20181220
  5. GAZYVA [Suspect]
     Active Substance: OBINUTUZUMAB
     Indication: B-CELL LYMPHOMA
     Route: 041
     Dates: start: 20190624, end: 2019
  6. EMEND [Concomitant]
     Active Substance: APREPITANT
     Dosage: DOSAGE IS UNCERTAIN.
     Route: 048
     Dates: start: 20181222, end: 20190516
  7. TREAKISYM [Suspect]
     Active Substance: BENDAMUSTINE HYDROCHLORIDE
     Indication: B-CELL LYMPHOMA
     Route: 041
     Dates: start: 20181222, end: 20190515
  8. FLUCONAZOLE. [Concomitant]
     Active Substance: FLUCONAZOLE
     Dosage: DOSAGE IS UNCERTAIN.
     Route: 048
     Dates: start: 20181220
  9. DAIPHEN [Concomitant]
     Active Substance: SULFAMETHOXAZOLE\TRIMETHOPRIM
     Dosage: DOSAGE IS UNCERTAIN.
     Route: 048
     Dates: start: 20181229
  10. FEBURIC [Concomitant]
     Active Substance: FEBUXOSTAT
     Dosage: DOSAGE IS UNCERTAIN.
     Route: 048
     Dates: start: 20181220, end: 20190611
  11. CALONAL [Concomitant]
     Active Substance: ACETAMINOPHEN
     Dosage: DOSAGE IS UNCERTAIN.
     Route: 048
     Dates: start: 20181220, end: 20190514

REACTIONS (2)
  - Cytomegalovirus test positive [Recovered/Resolved]
  - Cytomegalovirus chorioretinitis [Recovered/Resolved]

NARRATIVE: CASE EVENT DATE: 20190813
